FAERS Safety Report 9971972 (Version 1)
Quarter: 2014Q1

REPORT INFORMATION
  Report Type: Report from Study
  Country: US (occurrence: US)
  Receive Date: 20140306
  Receipt Date: 20140306
  Transmission Date: 20141002
  Serious: No
  Sender: FDA-Public Use
  Company Number: US-ABBVIE-13P-163-1150259-00

PATIENT
  Age: 43 Year
  Sex: Male

DRUGS (3)
  1. HUMIRA [Suspect]
     Indication: CROHN^S DISEASE
     Dates: start: 20130905
  2. HUMIRA [Suspect]
     Dosage: 2ND LOADING DOSE
     Dates: start: 20130918
  3. IBUPROFEN [Concomitant]
     Indication: BONE PAIN
     Dosage: LIQUID GELS; PATIENT TAKES ABOUT ONCE EVERY 2 DAYS

REACTIONS (2)
  - Inappropriate schedule of drug administration [Not Recovered/Not Resolved]
  - Injection site papule [Not Recovered/Not Resolved]
